FAERS Safety Report 5923195-7 (Version None)
Quarter: 2008Q4

REPORT INFORMATION
  Report Type: 
  Country: None (occurrence: None)
  Receive Date: 20081020
  Receipt Date: 20081010
  Transmission Date: 20090506
  Serious: Yes (Hospitalization)
  Sender: FDA-Public Use
  Company Number: US-BAYER-200825937NA

PATIENT
  Sex: Female

DRUGS (3)
  1. AVELOX [Suspect]
     Indication: DRUG USE FOR UNKNOWN INDICATION
     Dosage: TOTAL DAILY DOSE: 400 MG  UNIT DOSE: 400 MG
     Route: 048
     Dates: start: 20080523, end: 20080523
  2. CIPRO [Suspect]
     Indication: URINARY TRACT INFECTION
     Dosage: TOTAL DAILY DOSE: 500 MG  UNIT DOSE: 250 MG
     Dates: start: 20080521
  3. CALCIUM [Concomitant]

REACTIONS (9)
  - BLOOD POTASSIUM DECREASED [None]
  - EYE SWELLING [None]
  - HYPERSENSITIVITY [None]
  - HYPOKINESIA [None]
  - PRURITUS [None]
  - PRURITUS GENERALISED [None]
  - SPEECH DISORDER [None]
  - SWELLING FACE [None]
  - TRANSIENT ISCHAEMIC ATTACK [None]
